FAERS Safety Report 21983890 (Version 1)
Quarter: 2023Q1

REPORT INFORMATION
  Report Type: Other
  Country: CA (occurrence: CA)
  Receive Date: 20230213
  Receipt Date: 20230213
  Transmission Date: 20230418
  Serious: Yes (Other)
  Sender: FDA-Public Use
  Company Number: CA-HLS-202109066

PATIENT
  Age: 31 Year
  Sex: Male

DRUGS (4)
  1. CLOZAPINE [Suspect]
     Active Substance: CLOZAPINE
     Indication: Psychotic disorder
     Dosage: INCREASING BY 12.5 TO 25 MG EVERY ONE TO TWO DAYS UNTIL REACHING A DAILY DOSE OF 400 MG, FOR 39 DAYS
     Route: 065
  2. CLOZAPINE [Suspect]
     Active Substance: CLOZAPINE
     Indication: Psychotic disorder
     Dosage: THE 400 MG DOSE WAS REACHED IN 5 DAYS AND WAS SWITCHED TO ONCE-DAILY ADMINISTRATION ON DAY 8.
     Route: 065
  3. OLANZAPINE [Concomitant]
     Active Substance: OLANZAPINE
     Indication: Product used for unknown indication
     Route: 065
  4. QUETIAPINE [Concomitant]
     Active Substance: QUETIAPINE
     Indication: Product used for unknown indication
     Dosage: LONG ACTING
     Route: 065

REACTIONS (15)
  - Neutrophil count decreased [Unknown]
  - Anger [Recovering/Resolving]
  - Blood pressure decreased [Unknown]
  - Hallucination [Recovering/Resolving]
  - Irritability [Recovering/Resolving]
  - Off label use [Not Recovered/Not Resolved]
  - Delusional disorder, persecutory type [Recovering/Resolving]
  - Treatment noncompliance [Unknown]
  - Substance use [Unknown]
  - Leukopenia [Unknown]
  - Restlessness [Recovering/Resolving]
  - Sedation [Unknown]
  - Rash [Unknown]
  - Violence-related symptom [Recovering/Resolving]
  - Aggression [Recovering/Resolving]
